FAERS Safety Report 16877893 (Version 1)
Quarter: 2019Q4

REPORT INFORMATION
  Report Type: Spontaneous
  Country: US (occurrence: US)
  Receive Date: 20191002
  Receipt Date: 20191002
  Transmission Date: 20200122
  Serious: No
  Sender: FDA-Public Use
  Company Number: US-BAUSCH-BL-2019-026174

PATIENT
  Age: 53 Year
  Sex: Male
  Weight: 77.18 kg

DRUGS (2)
  1. LUMIFY [Suspect]
     Active Substance: BRIMONIDINE TARTRATE
     Dosage: PARTICULAR BOTTLE THAT THE PATIENT HAD LEFT IN THE CAR FOR ABOUT 2 MONTHS
     Route: 047
     Dates: start: 2019, end: 20190909
  2. LUMIFY [Suspect]
     Active Substance: BRIMONIDINE TARTRATE
     Indication: OCULAR HYPERAEMIA
     Dosage: START DATE: ABOUT 6 MONTHS AGO; PREVIOUS BOTTLES
     Route: 047
     Dates: start: 2019, end: 2019

REACTIONS (3)
  - Eye irritation [Recovered/Resolved]
  - Product storage error [Unknown]
  - Product quality issue [Unknown]

NARRATIVE: CASE EVENT DATE: 2019
